FAERS Safety Report 4919119-1 (Version None)
Quarter: 2006Q1

REPORT INFORMATION
  Report Type: 
  Country: None (occurrence: None)
  Receive Date: 20060222
  Receipt Date: 20050325
  Transmission Date: 20060701
  Serious: Yes (Death, Hospitalization)
  Sender: FDA-Public Use
  Company Number: US-MERCK-0503USA05007

PATIENT
  Age: 59 Year
  Sex: Male
  Weight: 73 kg

DRUGS (17)
  1. VIOXX [Suspect]
     Indication: ARTHRITIS
     Route: 048
     Dates: start: 20010801, end: 20030208
  2. SEREVENT [Concomitant]
     Route: 065
  3. FLOMAX (MORNIFLUMATE) [Concomitant]
     Route: 065
  4. FLUOROPLEX [Concomitant]
     Route: 065
  5. STARLIX [Concomitant]
     Route: 065
  6. MONOPRIL [Concomitant]
     Route: 065
  7. ALPHAGAN [Concomitant]
     Route: 065
  8. GLIPIZIDE [Concomitant]
     Route: 065
  9. SONATA [Concomitant]
     Route: 065
  10. XALATAN [Concomitant]
     Route: 065
  11. GUIATUSS [Concomitant]
     Route: 065
  12. PROVENTIL [Concomitant]
     Route: 065
  13. BIAXIN [Concomitant]
     Route: 065
  14. TRIAMCINOLONE [Concomitant]
     Route: 065
  15. GLUCOTROL XL [Concomitant]
     Route: 065
  16. RANITIDINE [Concomitant]
     Route: 065
  17. TIMOPTIC [Concomitant]
     Route: 065

REACTIONS (4)
  - ADVERSE EVENT [None]
  - CARDIAC DISORDER [None]
  - DEATH [None]
  - MYOCARDIAL INFARCTION [None]
